FAERS Safety Report 25226183 (Version 1)
Quarter: 2025Q2

REPORT INFORMATION
  Report Type: Spontaneous
  Country: US (occurrence: US)
  Receive Date: 20250422
  Receipt Date: 20250422
  Transmission Date: 20250717
  Serious: No
  Sender: BAYER HEALTHCARE PHARMACEUTICALS INC.
  Company Number: US-BAYER-2025A054226

PATIENT
  Sex: Female

DRUGS (2)
  1. MIRENA [Suspect]
     Active Substance: LEVONORGESTREL
     Indication: Psoriasis
     Dosage: 20?G/DAY
     Route: 015
     Dates: start: 202112
  2. TREMFYA [Concomitant]
     Active Substance: GUSELKUMAB

REACTIONS (3)
  - Arthropod bite [Recovering/Resolving]
  - Arthropod bite [Recovering/Resolving]
  - Device use issue [None]
